FAERS Safety Report 8012996-X (Version None)
Quarter: 2011Q4

REPORT INFORMATION
  Report Type: 
  Country: None (occurrence: None)
  Receive Date: 20111229
  Receipt Date: 20111219
  Transmission Date: 20120403
  Serious: Yes (Death)
  Sender: FDA-Public Use
  Company Number: US-PFIZER INC-2011310005

PATIENT
  Age: 41 Year
  Sex: Female

DRUGS (4)
  1. TRAMADOL HYDROCHLORIDE [Suspect]
  2. HEROIN [Suspect]
  3. DIPHENHYDRAMINE HCL [Suspect]
  4. SERTRALINE HYDROCHLORIDE [Suspect]

REACTIONS (3)
  - RESPIRATORY ARREST [None]
  - DEATH [None]
  - CARDIAC ARREST [None]
